FAERS Safety Report 10423412 (Version 1)
Quarter: 2014Q3

REPORT INFORMATION
  Report Type: Spontaneous
  Country: US (occurrence: None)
  Receive Date: 20140722
  Receipt Date: 20140722
  Transmission Date: 20150326
  Serious: No
  Sender: FDA-Public Use
  Company Number: 163-10004-14062966

PATIENT
  Age: 64 Year
  Sex: Female
  Weight: 78.02 kg

DRUGS (4)
  1. VIT D(ERGOCALCIFEROL)(UNKNOWN) [Concomitant]
  2. OTEZLA [Suspect]
     Active Substance: APREMILAST
     Indication: PSORIATIC ARTHROPATHY
     Route: 048
     Dates: start: 20140609
  3. PROPANOLOL(PROPRANOLOL)(UNKNOWN) [Concomitant]
  4. CLOZAPINE(CLOZAPINE)(UNKNOWN) [Concomitant]

REACTIONS (1)
  - Diarrhoea [None]

NARRATIVE: CASE EVENT DATE: 20140611
